FAERS Safety Report 13769567 (Version 3)
Quarter: 2017Q3

REPORT INFORMATION
  Report Type: Spontaneous
  Country: BG (occurrence: BG)
  Receive Date: 20170719
  Receipt Date: 20170728
  Transmission Date: 20171127
  Serious: Yes (Death)
  Sender: FDA-Public Use
  Company Number: BG-CELLTRION INC.-2017BG009251

PATIENT

DRUGS (8)
  1. REMSIMA [Suspect]
     Active Substance: INFLIXIMAB
     Indication: CROHN^S DISEASE
     Dosage: 300 MG, UNK
     Route: 065
     Dates: start: 20170530, end: 20170530
  2. REMSIMA [Suspect]
     Active Substance: INFLIXIMAB
     Dosage: 300 MG, UNK
     Route: 065
     Dates: start: 20170612, end: 20170612
  3. IMURAN [Suspect]
     Active Substance: AZATHIOPRINE
     Indication: CROHN^S DISEASE
     Dosage: 150 MG, DAILY
     Route: 065
     Dates: start: 20170530
  4. VITAMINS                           /00067501/ [Concomitant]
     Active Substance: VITAMINS
  5. FLEBODIA [Suspect]
     Active Substance: DIOSMIN
     Indication: VENOUS THROMBOSIS
     Dosage: 600 MG, 2X1 TABLET DAILY
     Route: 065
     Dates: start: 20170530
  6. XARELTO [Suspect]
     Active Substance: RIVAROXABAN
     Indication: VENOUS THROMBOSIS
     Dosage: 20 MG, ONCE DAILY
     Route: 065
     Dates: start: 20170530
  7. SALOFALK                           /00747601/ [Suspect]
     Active Substance: MESALAMINE
     Indication: PRODUCT USED FOR UNKNOWN INDICATION
     Dosage: 500 MG, 6X1 TABLET DAILY
     Route: 065
     Dates: start: 20170530
  8. PREDNISOLONE. [Suspect]
     Active Substance: PREDNISOLONE
     Indication: PREMEDICATION
     Dosage: UNK
     Route: 065
     Dates: start: 20170530, end: 20170612

REACTIONS (1)
  - Cardiovascular disorder [Fatal]

NARRATIVE: CASE EVENT DATE: 20170709
